FAERS Safety Report 5015523-4 (Version None)
Quarter: 2006Q2

REPORT INFORMATION
  Report Type: 
  Country: None (occurrence: None)
  Receive Date: 20060526
  Receipt Date: 20060519
  Transmission Date: 20061013
  Serious: Yes (Hospitalization)
  Sender: FDA-Public Use
  Company Number: TCI2006A01915

PATIENT
  Age: 84 Year
  Sex: Male

DRUGS (10)
  1. ACTOS [Suspect]
     Indication: DIABETES MELLITUS NON-INSULIN-DEPENDENT
     Dosage: 15 MG (15 MG, 1 IN 1 D) PER ORAL
     Route: 048
     Dates: start: 20051115, end: 20060506
  2. KAD-1229 (MITIGLINIDE CALCIUM) [Suspect]
     Indication: DIABETES MELLITUS NON-INSULIN-DEPENDENT
     Dosage: 15, 30 MG, OR PLACEBO (3 IN 1 D) PER ORAL
     Route: 048
     Dates: start: 20060314, end: 20060506
  3. CALSLOT TABLETS 10 (MANIDIPINE HYDROCHLORIDE) [Concomitant]
  4. LIPITOR [Concomitant]
  5. FLUMETHOLON (FLUOROMETHOLONE) [Concomitant]
  6. TIMOLOL MALEATE [Concomitant]
  7. XALATAN [Concomitant]
  8. AZOPT [Concomitant]
  9. LEVOFLOXACIN [Concomitant]
  10. PURSENNIDE (SENNA ALEXANDRINA LEAF) [Concomitant]

REACTIONS (2)
  - BENIGN PROSTATIC HYPERPLASIA [None]
  - BLADDER CANCER [None]
